FAERS Safety Report 4349954-2 (Version None)
Quarter: 2004Q2

REPORT INFORMATION
  Report Type: 
  Country: None (occurrence: None)
  Receive Date: 20040428
  Receipt Date: 20040428
  Transmission Date: 20050107
  Serious: No
  Sender: FDA-Public Use
  Company Number: None

PATIENT
  Age: 68 Year
  Sex: Female

DRUGS (6)
  1. PANTOPRAZOLE 40MG WYETH [Suspect]
     Indication: UPPER GASTROINTESTINAL HAEMORRHAGE
     Dosage: 40 MG Q12 INTRAVENOUS
     Route: 042
     Dates: start: 20040101, end: 20040103
  2. FUROSEMIDE [Concomitant]
  3. SPIRONOLACTONE [Concomitant]
  4. ASPIRIN [Concomitant]
  5. FERROUS SULFATE TAB [Concomitant]
  6. CLOPIDOGREL [Concomitant]

REACTIONS (2)
  - BRAIN DEATH [None]
  - HYPERTHERMIA [None]
